FAERS Safety Report 9668546 (Version 1)
Quarter: 2013Q4

REPORT INFORMATION
  Report Type: Spontaneous
  Country: US (occurrence: US)
  Receive Date: 20131105
  Receipt Date: 20131105
  Transmission Date: 20140711
  Serious: No
  Sender: FDA-Public Use
  Company Number: US-BIOGENIDEC-2013BI104177

PATIENT
  Sex: Female
  Weight: 88 kg

DRUGS (8)
  1. AVONEX [Suspect]
     Indication: RELAPSING-REMITTING MULTIPLE SCLEROSIS
     Route: 030
     Dates: start: 20120320, end: 20130514
  2. TECFIDERA [Concomitant]
     Indication: PRODUCT USED FOR UNKNOWN INDICATION
     Dates: start: 201307, end: 201309
  3. CELEXA [Concomitant]
  4. ALTAVERA [Concomitant]
  5. ANTIVERT [Concomitant]
  6. CELEXA [Concomitant]
  7. VITAMIN D [Concomitant]
  8. CALAN SR [Concomitant]

REACTIONS (5)
  - Migraine [Unknown]
  - Panic attack [Recovered/Resolved]
  - Central nervous system lesion [Unknown]
  - Multiple sclerosis relapse [Unknown]
  - Depression [Unknown]
